FAERS Safety Report 24340754 (Version 2)
Quarter: 2024Q3

REPORT INFORMATION
  Report Type: Spontaneous
  Country: US (occurrence: US)
  Receive Date: 20240919
  Receipt Date: 20240924
  Transmission Date: 20241017
  Serious: No
  Sender: IPSEN
  Company Number: US-IPSEN Group, Research and Development-2024-18797

PATIENT
  Sex: Female

DRUGS (2)
  1. SOHONOS [Suspect]
     Active Substance: PALOVAROTENE
     Indication: Fibrodysplasia ossificans progressiva
     Route: 048
     Dates: start: 202311
  2. SOHONOS [Suspect]
     Active Substance: PALOVAROTENE
     Dosage: FLARE DOSE
     Route: 048
     Dates: start: 20240903

REACTIONS (2)
  - Condition aggravated [Unknown]
  - Dry skin [Unknown]
